FAERS Safety Report 9296130 (Version 1)
Quarter: 2013Q2

REPORT INFORMATION
  Report Type: Spontaneous
  Country: IT (occurrence: IT)
  Receive Date: 20130517
  Receipt Date: 20130517
  Transmission Date: 20140414
  Serious: Yes (Other)
  Sender: FDA-Public Use
  Company Number: IT-JNJFOC-20130504963

PATIENT
  Age: 37 Year
  Sex: Male

DRUGS (1)
  1. RISPERDAL [Suspect]
     Indication: MENTAL DISORDER
     Route: 048
     Dates: start: 20130507, end: 20130507

REACTIONS (5)
  - Hyponatraemia [Unknown]
  - Hypernatraemia [Unknown]
  - Sopor [Unknown]
  - Vomiting [Unknown]
  - Leukocytosis [Unknown]
